FAERS Safety Report 21543360 (Version 4)
Quarter: 2023Q2

REPORT INFORMATION
  Report Type: Report from Study
  Country: JP (occurrence: None)
  Receive Date: 20221102
  Receipt Date: 20230621
  Transmission Date: 20230721
  Serious: Yes (Death)
  Sender: FDA-Public Use
  Company Number: 2022A360415

PATIENT
  Age: 84 Year
  Sex: Female
  Weight: 58 kg

DRUGS (2)
  1. ONDEXXYA [Suspect]
     Active Substance: ANDEXANET ALFA
     Indication: Basal ganglia haemorrhage
     Dosage: 400 MG + 480 MG
     Route: 042
     Dates: start: 20221011, end: 20221011
  2. ELIQUIS [Concomitant]
     Active Substance: APIXABAN
     Route: 048

REACTIONS (1)
  - Cerebral haemorrhage [Fatal]
